FAERS Safety Report 25595488 (Version 1)
Quarter: 2025Q3

REPORT INFORMATION
  Report Type: Report from Study
  Country: US (occurrence: US)
  Receive Date: 20250723
  Receipt Date: 20250723
  Transmission Date: 20251021
  Serious: Yes (Other)
  Sender: ALEXION PHARMACEUTICALS
  Company Number: US-AstraZeneca-CH-00912391A

PATIENT
  Sex: Male

DRUGS (1)
  1. ACALABRUTINIB [Suspect]
     Active Substance: ACALABRUTINIB
     Indication: Dermatochalasis
     Dosage: 100 MILLIGRAM, Q12H
     Dates: start: 202311

REACTIONS (12)
  - Fall [Unknown]
  - Pain in extremity [Unknown]
  - Pneumonia [Unknown]
  - Arthralgia [Unknown]
  - Back pain [Unknown]
  - Haemoglobin decreased [Unknown]
  - Metastasis [Unknown]
  - Depression [Unknown]
  - Schizophrenia [Unknown]
  - Bipolar disorder [Unknown]
  - Myocardial infarction [Unknown]
  - Balance disorder [Unknown]
